FAERS Safety Report 5405275-8 (Version None)
Quarter: 2007Q3

REPORT INFORMATION
  Report Type: 
  Country: None (occurrence: None)
  Receive Date: 20070803
  Receipt Date: 20070730
  Transmission Date: 20080115
  Serious: Yes (Hospitalization)
  Sender: FDA-Public Use
  Company Number: A0666907A

PATIENT
  Age: 79 Year
  Sex: Female

DRUGS (9)
  1. AVANDIA [Suspect]
     Indication: TYPE 2 DIABETES MELLITUS
     Route: 048
  2. GLUCOVANCE [Concomitant]
  3. LIPITOR [Concomitant]
  4. ACTOS [Concomitant]
  5. TOPROL-XL [Concomitant]
  6. NORVASC [Concomitant]
  7. PLAVIX [Concomitant]
  8. ZANTAC 150 [Concomitant]
  9. VITAMIN [Concomitant]

REACTIONS (9)
  - CEREBROVASCULAR ACCIDENT [None]
  - COLLAPSE OF LUNG [None]
  - DISABILITY [None]
  - FALL [None]
  - FATIGUE [None]
  - GAIT DISTURBANCE [None]
  - IMPAIRED DRIVING ABILITY [None]
  - MYOCARDIAL INFARCTION [None]
  - SPEECH DISORDER [None]
